FAERS Safety Report 20616043 (Version 1)
Quarter: 2022Q1

REPORT INFORMATION
  Report Type: Spontaneous
  Country: US (occurrence: None)
  Receive Date: 20220318
  Receipt Date: 20220318
  Transmission Date: 20220424
  Serious: No
  Sender: FDA-Public Use
  Company Number: None

PATIENT
  Age: 41 Year
  Sex: Female

DRUGS (3)
  1. CILGAVIMAB [Suspect]
     Active Substance: CILGAVIMAB
     Indication: COVID-19
     Dosage: FREQUENCY : ONCE;?OTHER ROUTE : GLUTEAL;?
     Route: 050
  2. EVUSHELD [Concomitant]
     Active Substance: CILGAVIMAB\TIXAGEVIMAB
     Dates: start: 20220318, end: 20220318
  3. DEVICE [Suspect]
     Active Substance: DEVICE

REACTIONS (4)
  - Product physical issue [None]
  - Syringe issue [None]
  - Device breakage [None]
  - Incorrect dose administered by device [None]

NARRATIVE: CASE EVENT DATE: 20220318
